FAERS Safety Report 19750259 (Version 1)
Quarter: 2021Q3

REPORT INFORMATION
  Report Type: Spontaneous
  Country: PL (occurrence: PL)
  Receive Date: 20210826
  Receipt Date: 20210826
  Transmission Date: 20211014
  Serious: Yes (Hospitalization)
  Sender: FDA-Public Use
  Company Number: PL-MYLANLABS-2021M1054747

PATIENT
  Age: 46 Year
  Sex: Female

DRUGS (1)
  1. ESCITALOPRAM [Suspect]
     Active Substance: ESCITALOPRAM OXALATE
     Indication: DEPRESSION
     Dosage: 10 MILLIGRAM, QD

REACTIONS (3)
  - Monoparesis [Recovered/Resolved]
  - Neurologic neglect syndrome [Recovering/Resolving]
  - Central nervous system lesion [Recovering/Resolving]
